APPROVED DRUG PRODUCT: DACTINOMYCIN
Active Ingredient: DACTINOMYCIN
Strength: 0.5MG/VIAL
Dosage Form/Route: INJECTABLE;INJECTION
Application: A090304 | Product #001
Applicant: HIKMA PHARMACEUTICALS USA INC
Approved: Mar 16, 2010 | RLD: No | RS: No | Type: DISCN